FAERS Safety Report 16371948 (Version 2)
Quarter: 2019Q3

REPORT INFORMATION
  Report Type: Spontaneous
  Country: US (occurrence: US)
  Receive Date: 20190530
  Receipt Date: 20190718
  Transmission Date: 20191004
  Serious: No
  Sender: FDA-Public Use
  Company Number: US-ASTRAZENECA-2019SE68488

PATIENT
  Age: 25521 Day
  Sex: Male
  Weight: 117.9 kg

DRUGS (1)
  1. SYMBICORT [Suspect]
     Active Substance: BUDESONIDE\FORMOTEROL FUMARATE DIHYDRATE
     Indication: ASTHMA
     Dosage: 80/4.5 MCG, ON AN AS NEEDED BASIS AS REQUIRED
     Route: 055
     Dates: start: 2011

REACTIONS (4)
  - Body height decreased [Unknown]
  - Device malfunction [Not Recovered/Not Resolved]
  - Off label use [Unknown]
  - Wrong technique in device usage process [Unknown]

NARRATIVE: CASE EVENT DATE: 20190428
